FAERS Safety Report 15079995 (Version 2)
Quarter: 2018Q3

REPORT INFORMATION
  Report Type: Report from Study
  Country: TH (occurrence: TH)
  Receive Date: 20180627
  Receipt Date: 20180719
  Transmission Date: 20181010
  Serious: Yes (Other)
  Sender: FDA-Public Use
  Company Number: TH-ELI_LILLY_AND_COMPANY-TH201806007465

PATIENT
  Age: 93 Year
  Sex: Female

DRUGS (1)
  1. TERIPARATIDE [Suspect]
     Active Substance: TERIPARATIDE
     Indication: OSTEOPOROSIS
     Dosage: 20 UG, DAILY
     Route: 058
     Dates: start: 20180403, end: 20180411

REACTIONS (5)
  - Swelling [Recovered/Resolved]
  - Drug hypersensitivity [Recovered/Resolved]
  - Palpitations [Unknown]
  - Muscular weakness [Recovered/Resolved]
  - Fatigue [Recovered/Resolved]

NARRATIVE: CASE EVENT DATE: 20180403
